FAERS Safety Report 10066755 (Version 2)
Quarter: 2014Q2

REPORT INFORMATION
  Report Type: Spontaneous
  Country: US (occurrence: US)
  Receive Date: 20140408
  Receipt Date: 20140529
  Transmission Date: 20141212
  Serious: No
  Sender: FDA-Public Use
  Company Number: US-GILEAD-2014-0099086

PATIENT
  Sex: Male

DRUGS (7)
  1. RANEXA [Suspect]
     Indication: PRODUCT USED FOR UNKNOWN INDICATION
     Dosage: 500 MG, UNK
     Route: 065
     Dates: start: 20140402
  2. ZOCOR [Concomitant]
  3. FINASTERIDE [Concomitant]
  4. THYROXINE [Concomitant]
  5. BABY ASPIRIN [Concomitant]
  6. SAW PALMETTO                       /00833501/ [Concomitant]
  7. VITAMINS NOS [Concomitant]

REACTIONS (1)
  - Tremor [Unknown]
